FAERS Safety Report 19406440 (Version 1)
Quarter: 2021Q2

REPORT INFORMATION
  Report Type: Spontaneous
  Country: AR (occurrence: AR)
  Receive Date: 20210611
  Receipt Date: 20210611
  Transmission Date: 20210717
  Serious: Yes (Other)
  Sender: FDA-Public Use
  Company Number: AR-PFIZER INC-2021085213

PATIENT
  Age: 43 Year
  Sex: Female

DRUGS (2)
  1. LETROZOLE. [Concomitant]
     Active Substance: LETROZOLE
     Dosage: UNK
  2. IBRANCE [Suspect]
     Active Substance: PALBOCICLIB
     Indication: BREAST CANCER METASTATIC
     Dosage: 125 MG, CYCLIC (DAILY, SCHEME 3X1)
     Dates: start: 20201023

REACTIONS (6)
  - Pleural effusion [Unknown]
  - Agitation [Recovering/Resolving]
  - Intentional dose omission [Unknown]
  - Oxygen saturation decreased [Unknown]
  - COVID-19 [Unknown]
  - Gait disturbance [Unknown]

NARRATIVE: CASE EVENT DATE: 202101
